FAERS Safety Report 12780088 (Version 4)
Quarter: 2017Q4

REPORT INFORMATION
  Report Type: Spontaneous
  Country: JP (occurrence: JP)
  Receive Date: 20160926
  Receipt Date: 20171127
  Transmission Date: 20180320
  Serious: Yes (Hospitalization, Other)
  Sender: FDA-Public Use
  Company Number: JP-PFIZER INC-2016431808

PATIENT
  Age: 73 Year
  Sex: Male

DRUGS (2)
  1. BENEFIX [Suspect]
     Active Substance: COAGULATION FACTOR IX RECOMBINANT HUMAN\ISOPROPYL ALCOHOL
     Indication: TOOTH EXTRACTION
     Dosage: 2000 IU, UNK
     Dates: start: 20171120
  2. BENEFIX [Suspect]
     Active Substance: COAGULATION FACTOR IX RECOMBINANT HUMAN\ISOPROPYL ALCOHOL
     Indication: HAEMORRHAGE PROPHYLAXIS
     Dosage: 1000 IU, 1X/DAY
     Route: 042
     Dates: start: 20120723, end: 20120727

REACTIONS (4)
  - Haemorrhage [Unknown]
  - Cataract [Unknown]
  - Product use in unapproved indication [Unknown]
  - Inguinal hernia [Recovered/Resolved]

NARRATIVE: CASE EVENT DATE: 201606
